FAERS Safety Report 19426090 (Version 1)
Quarter: 2021Q2

REPORT INFORMATION
  Report Type: Spontaneous
  Country: CA (occurrence: CA)
  Receive Date: 20210616
  Receipt Date: 20210616
  Transmission Date: 20210717
  Serious: Yes (Other)
  Sender: FDA-Public Use
  Company Number: CA-ANIPHARMA-2021-CA-000847

PATIENT
  Age: 83 Year
  Sex: Male

DRUGS (3)
  1. UPTRAVI [Suspect]
     Active Substance: SELEXIPAG
     Dosage: 2000 UG DAILY
     Route: 065
  2. ADCIRCA [Suspect]
     Active Substance: TADALAFIL
     Dosage: 40 MG UNK
     Route: 065
  3. CANDESARTAN CILEXETIL. [Suspect]
     Active Substance: CANDESARTAN CILEXETIL
     Indication: BLOOD PRESSURE INCREASED
     Dosage: 16 MG UNK
     Route: 048

REACTIONS (6)
  - Blood pressure fluctuation [Unknown]
  - Headache [Unknown]
  - Blood pressure decreased [Unknown]
  - Dizziness [Unknown]
  - Diarrhoea [Unknown]
  - Blood pressure increased [Unknown]
